FAERS Safety Report 9626638 (Version 2)
Quarter: 2013Q4

REPORT INFORMATION
  Report Type: Spontaneous
  Country: ES (occurrence: ES)
  Receive Date: 20131016
  Receipt Date: 20131114
  Transmission Date: 20140711
  Serious: Yes (Hospitalization)
  Sender: FDA-Public Use
  Company Number: ES-ALLERGAN-1316101US

PATIENT
  Age: 71 Year
  Sex: Female

DRUGS (28)
  1. VISTABEL [Suspect]
     Indication: SKIN WRINKLING
     Dosage: UNK
     Dates: start: 20130131, end: 20130131
  2. VISTABEL [Suspect]
     Indication: SKIN WRINKLING
     Dosage: UNK
     Dates: start: 201104, end: 201104
  3. VISTABEL [Suspect]
     Indication: SKIN WRINKLING
     Dosage: UNK
     Dates: start: 201004, end: 201004
  4. VISTABEL [Suspect]
     Indication: SKIN WRINKLING
     Dosage: UNK
     Dates: start: 200909, end: 200909
  5. JUVEDERM 4 [Concomitant]
     Indication: PRODUCT USED FOR UNKNOWN INDICATION
     Dosage: UNK
     Dates: start: 201104, end: 201104
  6. JUVEDERM 4 [Concomitant]
     Dosage: UNK
     Dates: start: 201004, end: 201004
  7. JUVEDERM 4 [Concomitant]
     Dosage: UNK
  8. ACCOLATE [Concomitant]
  9. ACFOL [Concomitant]
  10. ALEANDRONIC ACID [Concomitant]
  11. BESITRAN [Concomitant]
  12. BUDESONIDE [Concomitant]
  13. CELEBREX [Concomitant]
  14. DACORTIN [Concomitant]
  15. DIAZEPAM [Concomitant]
  16. DOXIUM [Concomitant]
  17. DUROGESIC [Concomitant]
  18. FERRO GRADUMET [Concomitant]
  19. GLUCAGEN [Concomitant]
  20. INALADUO [Concomitant]
  21. METOJECT [Concomitant]
  22. NOVOMIX [Concomitant]
  23. NOVORAPID [Concomitant]
  24. OMEPRAZOLE [Concomitant]
  25. PARACETAMOL [Concomitant]
  26. SIMVASTATIN [Concomitant]
  27. THEOLAIR [Concomitant]
  28. VENTOLIN [Concomitant]

REACTIONS (4)
  - Mass [Recovered/Resolved]
  - Pain [Recovered/Resolved]
  - Skin warm [Recovered/Resolved]
  - Asthma [Recovered/Resolved]
